FAERS Safety Report 4929656-1 (Version None)
Quarter: 2006Q1

REPORT INFORMATION
  Report Type: 
  Country: None (occurrence: None)
  Receive Date: 20060224
  Receipt Date: 20060208
  Transmission Date: 20060701
  Serious: Yes (Hospitalization)
  Sender: FDA-Public Use
  Company Number: PAR_0507_2006

PATIENT
  Age: 11 Year
  Sex: Male

DRUGS (2)
  1. IBUPROFEN [Suspect]
     Indication: NASOPHARYNGITIS
     Dosage: 400 MG ONCE PO
     Route: 048
  2. IBUPROFEN [Suspect]
     Indication: UPPER LIMB FRACTURE
     Dosage: DF ONCE

REACTIONS (18)
  - AGGRESSION [None]
  - ANAPHYLACTIC REACTION [None]
  - ANGIOPATHY [None]
  - ATRIAL FIBRILLATION [None]
  - COLLAGEN-VASCULAR DISEASE [None]
  - CONFUSIONAL STATE [None]
  - CONJUNCTIVITIS [None]
  - FLUSHING [None]
  - GENERAL PHYSICAL HEALTH DETERIORATION [None]
  - HYPERHIDROSIS [None]
  - HYPOTENSION [None]
  - LOSS OF CONSCIOUSNESS [None]
  - NAUSEA [None]
  - PERICARDIAL EFFUSION [None]
  - PYREXIA [None]
  - SEPSIS [None]
  - SYSTEMIC LUPUS ERYTHEMATOSUS [None]
  - TACHYCARDIA [None]
